FAERS Safety Report 9201835 (Version 4)
Quarter: 2014Q4

REPORT INFORMATION
  Report Type: Spontaneous
  Country: US (occurrence: None)
  Receive Date: 20130328
  Receipt Date: 20141125
  Transmission Date: 20150529
  Serious: Yes (Hospitalization, Other)
  Sender: FDA-Public Use
  Company Number: 2012-003352

PATIENT
  Age: 68 Year
  Sex: Female

DRUGS (27)
  1. HYDROCODONE W/ACETAMINOPHEN (HYDROCODONE BITARTRATE, PARACETAMOL) [Concomitant]
  2. RHINOCORT AQUA (BUDESONIDE) [Concomitant]
  3. ACTONEL [Suspect]
     Active Substance: RISEDRONATE SODIUM
     Indication: OSTEOPOROSIS PROPHYLAXIS
     Dates: start: 2001, end: 200204
  4. ACTONEL [Suspect]
     Active Substance: RISEDRONATE SODIUM
     Indication: OSTEOPOROSIS
     Route: 048
     Dates: start: 20020417
  5. FOSAMAX [Suspect]
     Active Substance: ALENDRONATE SODIUM
     Indication: OSTEOPOROSIS
     Route: 048
     Dates: start: 19991201, end: 20020417
  6. HYDROCONDONE (HYDROCODONE) [Concomitant]
  7. FOSAMAX [Suspect]
     Active Substance: ALENDRONATE SODIUM
     Indication: OSTEOPOROSIS PROPHYLAXIS
     Route: 048
     Dates: start: 19991201, end: 20020417
  8. ZOCOR [Concomitant]
     Active Substance: SIMVASTATIN
  9. CALCIUM (CALCIUM) [Concomitant]
     Active Substance: CALCIUM
  10. VITAMIN D (COLECALCIFEROL) [Concomitant]
  11. FOSAMAX [Suspect]
     Active Substance: ALENDRONATE SODIUM
     Indication: OSTEOPENIA
     Route: 048
     Dates: start: 19991201, end: 20020417
  12. ASPIRIN (ACETYLSALICYLIC ACID) [Concomitant]
     Active Substance: ASPIRIN
  13. PROPOXYPHENE N/APAP (DEXTROPROPOXYPHENE NAPSILATE, PARACETAMOL) [Concomitant]
  14. MIRALAX (MACROGOL) [Concomitant]
  15. ACTONEL [Suspect]
     Active Substance: RISEDRONATE SODIUM
     Indication: OSTEOPOROSIS PROPHYLAXIS
     Route: 048
     Dates: start: 20020417
  16. ACTONEL [Suspect]
     Active Substance: RISEDRONATE SODIUM
     Indication: OSTEOPENIA
     Route: 048
     Dates: start: 20020417
  17. CELEBREX [Concomitant]
     Active Substance: CELECOXIB
  18. CLARITIN [Concomitant]
     Active Substance: LORATADINE
  19. ACTONEL [Suspect]
     Active Substance: RISEDRONATE SODIUM
     Indication: OSTEOPENIA
     Dates: start: 2001, end: 200204
  20. ATENOLOL (ATENOLOL) [Concomitant]
     Active Substance: ATENOLOL
  21. LEVOTHYROXINE (LEVOTHYROXINE) [Concomitant]
     Active Substance: LEVOTHYROXINE
  22. MULTIVITAMIN (ASCORBIC ACID, CALCIUM PANTOTHENATE, ERGOCALCIFEROL, NICOTINAMIDE, PYRIDOXINE HYDROCHLORIDE, RETINOL, RIBOFLAVIN, THIAMINE HYDROCHLORIDE) [Concomitant]
  23. STAFLEX (PARACETAMOL, PHENYLTOLOXAMINE CITRATE) [Concomitant]
  24. XANAX [Concomitant]
     Active Substance: ALPRAZOLAM
     Dates: start: 2001, end: 200204
  25. ALBUTEROL (SALBUTAMOL) [Concomitant]
     Active Substance: ALBUTEROL
  26. OCUVITE (ASCORBIC ACID, RETINOL, TOCOPHEROL) [Concomitant]
  27. ACTONEL [Suspect]
     Active Substance: RISEDRONATE SODIUM
     Indication: OSTEOPOROSIS
     Dates: start: 2001, end: 200204

REACTIONS (10)
  - Low turnover osteopathy [None]
  - Pain [None]
  - Pain in extremity [None]
  - Fall [None]
  - Stress fracture [None]
  - Femur fracture [None]
  - Comminuted fracture [None]
  - Pathological fracture [None]
  - Bone disorder [None]
  - Multiple fractures [None]

NARRATIVE: CASE EVENT DATE: 200511
